FAERS Safety Report 7620356-6 (Version None)
Quarter: 2011Q3

REPORT INFORMATION
  Report Type: 
  Country: None (occurrence: None)
  Receive Date: 20110718
  Receipt Date: 20110718
  Transmission Date: 20111222
  Serious: Yes (Hospitalization, Other)
  Sender: FDA-Public Use
  Company Number: None

PATIENT
  Age: 67 Year
  Sex: Female
  Weight: 77.11 kg

DRUGS (1)
  1. MELOXICAM [Suspect]
     Indication: ARTHRITIS
     Dosage: 7.5 MG
     Route: 048
     Dates: start: 20110620, end: 20110714

REACTIONS (9)
  - INSOMNIA [None]
  - CONSTIPATION [None]
  - VIRAL INFECTION [None]
  - DYSPEPSIA [None]
  - BLOOD PRESSURE INCREASED [None]
  - TRANSIENT ISCHAEMIC ATTACK [None]
  - OEDEMA PERIPHERAL [None]
  - CHEST DISCOMFORT [None]
  - DIZZINESS [None]
